FAERS Safety Report 14525490 (Version 1)
Quarter: 2018Q1

REPORT INFORMATION
  Report Type: Spontaneous
  Country: US (occurrence: US)
  Receive Date: 20180210
  Receipt Date: 20180210
  Transmission Date: 20180509
  Serious: Yes (Life-Threatening, Hospitalization)
  Sender: FDA-Public Use
  Company Number: None

PATIENT
  Age: 60 Year
  Sex: Male
  Weight: 139.5 kg

DRUGS (21)
  1. HUMULIN R [Concomitant]
     Active Substance: INSULIN HUMAN
  2. FENIFIBRATE [Concomitant]
  3. LISINOPRIL 20 MG/HCTZ 12.5 MG [Suspect]
     Active Substance: HYDROCHLOROTHIAZIDE\LISINOPRIL
     Indication: HYPERTENSION
     Dosage: ?          QUANTITY:2 TABLET(S);?
     Route: 048
  4. AMLODIPINE [Concomitant]
     Active Substance: AMLODIPINE BESYLATE
  5. ATENOLOL. [Concomitant]
     Active Substance: ATENOLOL
  6. ALLOPURINOL. [Suspect]
     Active Substance: ALLOPURINOL
  7. LATANOPROST. [Concomitant]
     Active Substance: LATANOPROST
  8. FLUTICASONE PROPIONATE. [Concomitant]
     Active Substance: FLUTICASONE PROPIONATE
  9. FINASTERIDE. [Concomitant]
     Active Substance: FINASTERIDE
  10. TAMSULOSIN [Concomitant]
     Active Substance: TAMSULOSIN
  11. CENTRUM TYPE MULTIVITAMIN [Concomitant]
  12. HUMULIN N [Concomitant]
     Active Substance: INSULIN HUMAN
  13. FISH OIL [Concomitant]
     Active Substance: FISH OIL
  14. AFRIN [Concomitant]
     Active Substance: OXYMETAZOLINE
  15. METFORMIN [Concomitant]
     Active Substance: METFORMIN HYDROCHLORIDE
  16. VITAMIN D [Concomitant]
     Active Substance: CHOLECALCIFEROL
  17. VITAMIN C [Concomitant]
     Active Substance: ASCORBIC ACID
  18. ATORVASTATIN [Concomitant]
     Active Substance: ATORVASTATIN
  19. ZINC GLUCONATE [Concomitant]
     Active Substance: ZINC GLUCONATE
  20. CRANBERRY EXTRACT [Concomitant]
     Active Substance: CRANBERRY JUICE
  21. BABY ASPIRIN [Concomitant]
     Active Substance: ASPIRIN

REACTIONS (4)
  - Respiratory distress [None]
  - Anaphylactic shock [None]
  - Angioedema [None]
  - Swollen tongue [None]

NARRATIVE: CASE EVENT DATE: 20180208
